FAERS Safety Report 13561957 (Version 1)
Quarter: 2017Q2

REPORT INFORMATION
  Report Type: Report from Study
  Country: None (occurrence: AR)
  Receive Date: 20170518
  Receipt Date: 20170518
  Transmission Date: 20170830
  Serious: Yes (Life-Threatening, Hospitalization, Other)
  Sender: FDA-Public Use
  Company Number: AR-ABBVIE-17P-007-1954547-00

PATIENT
  Age: 57 Year
  Sex: Female

DRUGS (1)
  1. ZEMPLAR [Suspect]
     Active Substance: PARICALCITOL
     Indication: SECONDARY HYPERTHYROIDISM
     Route: 042
     Dates: start: 20120901

REACTIONS (4)
  - Bronchospasm [Recovered/Resolved]
  - Bacterial sepsis [Recovered/Resolved]
  - Malaise [Unknown]
  - Pyrexia [Unknown]

NARRATIVE: CASE EVENT DATE: 20170420
